FAERS Safety Report 5479947-3 (Version None)
Quarter: 2007Q4

REPORT INFORMATION
  Report Type: 
  Country: None (occurrence: None)
  Receive Date: 20071008
  Receipt Date: 20070924
  Transmission Date: 20080405
  Serious: Yes (Hospitalization)
  Sender: FDA-Public Use
  Company Number: GR-GENENTECH-226259

PATIENT
  Sex: Male
  Weight: 92 kg

DRUGS (8)
  1. BEVACIZUMAB [Suspect]
     Indication: COLON CANCER
     Dosage: 460 MG, Q2W
     Route: 042
     Dates: start: 20051213, end: 20060321
  2. OXALIPLATIN [Suspect]
     Indication: COLON CANCER
     Dosage: 178 MG, Q2W
     Route: 042
     Dates: start: 20051213
  3. OXALIPLATIN [Suspect]
     Dosage: 157.5 MG, UNK
     Dates: start: 20060321
  4. FLUOROURACIL [Suspect]
     Indication: COLON CANCER
     Dosage: 840 MG, UNK
     Route: 042
     Dates: start: 20051213
  5. FLUOROURACIL [Suspect]
     Dosage: 630 MG, UNK
     Route: 040
     Dates: start: 20060321
  6. FLUOROURACIL [Suspect]
     Dosage: 1050 MG, UNK
     Route: 042
  7. LEUCOVORIN [Suspect]
     Indication: COLON CANCER
     Dosage: 420 MG, UNK
     Route: 042
     Dates: start: 20051213
  8. NEORECORMON [Concomitant]
     Indication: DRUG USE FOR UNKNOWN INDICATION
     Dates: start: 20060322

REACTIONS (5)
  - ABDOMINAL PAIN [None]
  - FEBRILE NEUTROPENIA [None]
  - GASTRITIS [None]
  - LOWER RESPIRATORY TRACT INFECTION [None]
  - OESOPHAGITIS [None]
